FAERS Safety Report 10221492 (Version 2)
Quarter: 2014Q2

REPORT INFORMATION
  Report Type: Report from Study
  Country: JP (occurrence: JP)
  Receive Date: 20140606
  Receipt Date: 20140616
  Transmission Date: 20141212
  Serious: Yes (Hospitalization)
  Sender: FDA-Public Use
  Company Number: JP-NAPPMUNDI-GBR-2014-0018657

PATIENT
  Age: 78 Year
  Sex: Male

DRUGS (1)
  1. OXYCODONE HCL PR TABLET [Suspect]
     Indication: POST HERPETIC NEURALGIA
     Dosage: 10 MG, DAILY
     Route: 048
     Dates: start: 20140519, end: 20140526

REACTIONS (1)
  - Pneumonia [Recovering/Resolving]
